FAERS Safety Report 8815399 (Version 7)
Quarter: 2013Q1

REPORT INFORMATION
  Report Type: Spontaneous
  Country: US (occurrence: US)
  Receive Date: 20120928
  Receipt Date: 20130319
  Transmission Date: 20140127
  Serious: Yes (Hospitalization, Other)
  Sender: FDA-Public Use
  Company Number: US-009507513-1112USA00930

PATIENT
  Sex: Female

DRUGS (6)
  1. FOSAMAX [Suspect]
     Indication: OSTEOPOROSIS
     Dosage: 70 MG, QW
     Route: 048
     Dates: start: 20070605, end: 20080331
  2. FOSAMAX [Suspect]
     Indication: OSTEOPOROSIS
     Dosage: 70 MG, QW
     Route: 048
     Dates: start: 20080401, end: 201006
  3. ALENDRONATE SODIUM [Suspect]
     Indication: OSTEOPOROSIS
     Dosage: 70 MG, UNK
     Route: 048
  4. CALCIUM (UNSPECIFIED) [Concomitant]
     Indication: OSTEOPOROSIS
     Dosage: 500 MG, BID
     Dates: start: 2004
  5. VITAMIN D (UNSPECIFIED) [Concomitant]
     Indication: OSTEOPOROSIS
     Dosage: 600-1000 UNITS QD
     Route: 048
     Dates: start: 2004
  6. PANTOPRAZOLE [Concomitant]
     Dosage: UNK
     Dates: start: 2006

REACTIONS (27)
  - Open reduction of fracture [Unknown]
  - Femur fracture [Unknown]
  - Leukocytosis [Unknown]
  - Renal failure acute [Unknown]
  - Fall [Unknown]
  - Lung disorder [Unknown]
  - Bone disorder [Unknown]
  - Blood cholesterol increased [Unknown]
  - Hypertension [Not Recovered/Not Resolved]
  - Lumbar radiculopathy [Unknown]
  - Arthritis [Unknown]
  - Osteoarthritis [Unknown]
  - Lumbar spinal stenosis [Unknown]
  - Bronchitis [Unknown]
  - Tonsillectomy [Unknown]
  - Syncope [Unknown]
  - Spondylolisthesis [Unknown]
  - Meniscus injury [Unknown]
  - Depression [Unknown]
  - Fall [Unknown]
  - Exostosis [Unknown]
  - Bone disorder [Unknown]
  - Diarrhoea [Unknown]
  - Drug hypersensitivity [Unknown]
  - Drug hypersensitivity [Unknown]
  - Pruritus [Unknown]
  - Arthralgia [Unknown]
